FAERS Safety Report 7893736-1 (Version None)
Quarter: 2011Q4

REPORT INFORMATION
  Report Type: 
  Country: None (occurrence: None)
  Receive Date: 20111104
  Receipt Date: 20111024
  Transmission Date: 20120403
  Serious: Yes (Hospitalization)
  Sender: FDA-Public Use
  Company Number: PHHO2011NL17985

PATIENT
  Sex: Female

DRUGS (9)
  1. ASPIRIN [Concomitant]
  2. ACE INHIBITORS [Concomitant]
  3. HMG COA REDUCTASE INHIBITORS [Concomitant]
  4. SINTROM [Suspect]
  5. DIURETICS [Concomitant]
  6. GLICLAZIDE [Suspect]
     Indication: TYPE 2 DIABETES MELLITUS
     Dosage: 80 MG, UNK
  7. METFORMIN HCL [Suspect]
     Indication: TYPE 2 DIABETES MELLITUS
     Dosage: 2550 MG, UNK
  8. BETA BLOCKING AGENTS [Concomitant]
  9. SAXAGLIPTIN [Suspect]
     Indication: TYPE 2 DIABETES MELLITUS
     Dosage: UNK
     Dates: start: 20110202

REACTIONS (1)
  - HAEMATOMA [None]
